FAERS Safety Report 18845230 (Version 4)
Quarter: 2022Q2

REPORT INFORMATION
  Report Type: Report from Study
  Country: US (occurrence: US)
  Receive Date: 20210204
  Receipt Date: 20220510
  Transmission Date: 20220721
  Serious: Yes (Hospitalization, Other)
  Sender: FDA-Public Use
  Company Number: US-TAKEDA-2021TUS005645

PATIENT
  Age: 66 Year
  Sex: Female

DRUGS (1)
  1. HUMAN IMMUNOGLOBULIN G [Suspect]
     Active Substance: HUMAN IMMUNOGLOBULIN G
     Indication: Primary immunodeficiency syndrome
     Dosage: UNK
     Route: 042

REACTIONS (11)
  - Sjogren^s syndrome [Unknown]
  - Blood pressure decreased [Unknown]
  - Infusion related reaction [Recovered/Resolved]
  - Headache [Unknown]
  - Myalgia [Unknown]
  - Lethargy [Unknown]
  - Chronic sinusitis [Unknown]
  - Feeling abnormal [Unknown]
  - Tendonitis [Not Recovered/Not Resolved]
  - Inappropriate schedule of product administration [Recovering/Resolving]
  - Insurance issue [Unknown]

NARRATIVE: CASE EVENT DATE: 20220120
